FAERS Safety Report 9874803 (Version 2)
Quarter: 2014Q1

REPORT INFORMATION
  Report Type: Report from Study
  Country: BR (occurrence: BR)
  Receive Date: 20140206
  Receipt Date: 20140206
  Transmission Date: 20141002
  Serious: Yes (Other)
  Sender: FDA-Public Use
  Company Number: PHHY2013BR087996

PATIENT
  Age: 73 Year
  Sex: Male

DRUGS (6)
  1. GALVUS MET [Suspect]
     Indication: DIABETES MELLITUS
     Dosage: 2 DF (500MG METF/ 50MG VILD ) DAILY
     Route: 048
     Dates: start: 201209
  2. GALVUS MET [Suspect]
     Dosage: 1 DF, (500/50 MG)
     Route: 048
  3. METFORMIN [Suspect]
     Dosage: 3 DF, DAILY
  4. GLICAMIN//GLIBENCLAMIDE [Suspect]
     Dosage: UNK UKN, UNK
  5. LEVEMIR [Suspect]
     Dosage: UNK UKN, UNK
  6. SUSTRATE [Concomitant]
     Indication: VASODILATATION
     Dosage: 3 DF, DAILY
     Route: 048

REACTIONS (7)
  - Fluid retention [Recovered/Resolved]
  - Muscle atrophy [Not Recovered/Not Resolved]
  - Arthralgia [Not Recovered/Not Resolved]
  - Conjunctival haemorrhage [Not Recovered/Not Resolved]
  - Condition aggravated [Unknown]
  - Myalgia [Unknown]
  - Diabetes mellitus inadequate control [Recovering/Resolving]
